FAERS Safety Report 9956365 (Version 1)
Quarter: 2014Q1

REPORT INFORMATION
  Report Type: Report from Study
  Country: PT (occurrence: PT)
  Receive Date: 20140304
  Receipt Date: 20140304
  Transmission Date: 20141002
  Serious: Yes (Hospitalization)
  Sender: FDA-Public Use
  Company Number: PT-BRISTOL-MYERS SQUIBB COMPANY-20238481

PATIENT
  Age: 66 Year
  Sex: Male

DRUGS (8)
  1. BLINDED: IPILIMUMAB [Suspect]
     Indication: NON-SMALL CELL LUNG CANCER
     Dosage: 1 DF=165 (UNIT NOT SPECIFIED)
     Route: 042
     Dates: start: 20140203, end: 20140203
  2. CARBOPLATIN [Suspect]
     Indication: NON-SMALL CELL LUNG CANCER
     Dosage: 1 DF=887.3 (UNIT NOT SPECIFIED)
     Route: 042
     Dates: start: 20140203, end: 20140203
  3. PACLITAXEL [Suspect]
     Indication: NON-SMALL CELL LUNG CANCER
     Dosage: 1 DF=350 (UNIT NOT SPECIFIED)
     Route: 042
     Dates: start: 20140203, end: 20140203
  4. BLINDED: PLACEBO [Suspect]
     Indication: NON-SMALL CELL LUNG CANCER
     Route: 042
     Dates: start: 20140203, end: 20140203
  5. OMEPRAZOL [Concomitant]
     Dates: start: 20131213
  6. PARACETAMOL [Concomitant]
     Dates: start: 20131213
  7. LORAZEPAM [Concomitant]
     Dates: start: 20140110
  8. IBUPROFEN [Concomitant]
     Dates: start: 20140110

REACTIONS (1)
  - Respiratory tract infection [Recovered/Resolved]
